FAERS Safety Report 14387427 (Version 2)
Quarter: 2019Q3

REPORT INFORMATION
  Report Type: Spontaneous
  Country: US (occurrence: US)
  Receive Date: 20180115
  Receipt Date: 20190827
  Transmission Date: 20191004
  Serious: Yes (Other)
  Sender: FDA-Public Use
  Company Number: US-SA-2017SA195355

PATIENT
  Age: 47 Year
  Sex: Female
  Weight: 81.64 kg

DRUGS (29)
  1. DEXAMETHASONE. [Concomitant]
     Active Substance: DEXAMETHASONE
     Dosage: UNK UNK,UNK
     Route: 065
     Dates: start: 2014
  2. AMITIZA [Concomitant]
     Active Substance: LUBIPROSTONE
     Dosage: UNK UNK,UNK
     Route: 065
     Dates: start: 2014
  3. TOPROL XL [Concomitant]
     Active Substance: METOPROLOL SUCCINATE
     Dosage: UNK UNK,UNK
     Route: 065
     Dates: start: 2014
  4. NEURONTIN [Concomitant]
     Active Substance: GABAPENTIN
     Dosage: UNK UNK,UNK
     Route: 065
     Dates: start: 20141208
  5. FLUOROURACIL. [Concomitant]
     Active Substance: FLUOROURACIL
  6. NEOSAR [Concomitant]
     Active Substance: CYCLOPHOSPHAMIDE
  7. COLACE [Concomitant]
     Active Substance: DOCUSATE SODIUM
     Dosage: UNK UNK,UNK
     Route: 065
     Dates: start: 2014
  8. TAMOXIFEN [Concomitant]
     Active Substance: TAMOXIFEN
     Dosage: UNK UNK,UNK
     Route: 065
     Dates: start: 2014
  9. AMBIEN [Concomitant]
     Active Substance: ZOLPIDEM TARTRATE
     Dosage: UNK UNK,UNK
     Route: 065
     Dates: start: 2014
  10. MOBIC [Concomitant]
     Active Substance: MELOXICAM
     Dosage: UNK UNK,UNK
     Route: 065
     Dates: start: 2014
  11. VECTIBIX [Concomitant]
     Active Substance: PANITUMUMAB
  12. PROCHLORPERAZINE. [Concomitant]
     Active Substance: PROCHLORPERAZINE
     Dosage: UNK UNK,UNK
     Route: 065
     Dates: start: 2014
  13. TAXOTERE [Suspect]
     Active Substance: DOCETAXEL
     Dosage: 75 MG/M2,Q3W
     Route: 042
     Dates: start: 20140522, end: 20140522
  14. ELLENCE [Concomitant]
     Active Substance: EPIRUBICIN HYDROCHLORIDE
  15. EPIRUBICIN [Concomitant]
     Active Substance: EPIRUBICIN
  16. ZOFRAN [Concomitant]
     Active Substance: ONDANSETRON HYDROCHLORIDE
     Dosage: UNK UNK,UNK
     Route: 065
     Dates: start: 2014
  17. CLONIDINE. [Concomitant]
     Active Substance: CLONIDINE
     Dosage: UNK UNK,UNK
     Route: 065
     Dates: start: 2014
  18. TOPROL XL [Concomitant]
     Active Substance: METOPROLOL SUCCINATE
     Dosage: UNK UNK,UNK
     Route: 065
     Dates: start: 20140604
  19. ADDERALL [Concomitant]
     Active Substance: AMPHETAMINE ASPARTATE\AMPHETAMINE SULFATE\DEXTROAMPHETAMINE SACCHARATE\DEXTROAMPHETAMINE SULFATE
     Dosage: UNK UNK,UNK
     Route: 065
     Dates: start: 20170817
  20. TAXOTERE [Suspect]
     Active Substance: DOCETAXEL
     Indication: BREAST CANCER FEMALE
     Dosage: 75 MG/M2,Q3W
     Route: 042
     Dates: start: 20140320, end: 20140320
  21. AMITIZA [Concomitant]
     Active Substance: LUBIPROSTONE
     Dosage: UNK UNK,UNK
     Route: 065
     Dates: start: 20131203
  22. EFFEXOR [Concomitant]
     Active Substance: VENLAFAXINE HYDROCHLORIDE
     Dosage: UNK UNK,UNK
     Route: 065
     Dates: start: 20141210
  23. WELLBUTRIN [Concomitant]
     Active Substance: BUPROPION HYDROCHLORIDE
     Dosage: UNK UNK,UNK
     Route: 065
     Dates: start: 2014
  24. CITALOPRAM HYDROBROMIDE. [Concomitant]
     Active Substance: CITALOPRAM HYDROBROMIDE
     Dosage: UNK UNK,UNK
     Route: 065
     Dates: start: 2014
  25. FEMARA [Concomitant]
     Active Substance: LETROZOLE
     Dosage: UNK UNK,UNK
     Route: 065
     Dates: start: 20161006
  26. PARAPLATIN [Concomitant]
     Active Substance: CARBOPLATIN
  27. NEURONTIN [Concomitant]
     Active Substance: GABAPENTIN
     Dosage: UNK UNK,UNK
     Route: 065
     Dates: start: 2014
  28. CYCLOPHOSPHAMIDE. [Concomitant]
     Active Substance: CYCLOPHOSPHAMIDE
  29. TRAMADOL. [Concomitant]
     Active Substance: TRAMADOL
     Dosage: UNK UNK,UNK
     Route: 065
     Dates: start: 2014

REACTIONS (2)
  - Psychological trauma [Unknown]
  - Alopecia [Recovering/Resolving]

NARRATIVE: CASE EVENT DATE: 20141122
